FAERS Safety Report 6692877-4 (Version None)
Quarter: 2010Q2

REPORT INFORMATION
  Report Type: 
  Country: None (occurrence: None)
  Receive Date: 20100422
  Receipt Date: 20100412
  Transmission Date: 20101027
  Serious: Yes (Death)
  Sender: FDA-Public Use
  Company Number: JP-ABBOTT-10P-087-0639991-00

PATIENT
  Age: 82 Year
  Sex: Male

DRUGS (5)
  1. LEUPROLIDE ACETATE [Suspect]
     Indication: PROSTATE CANCER
     Route: 058
     Dates: start: 20060530, end: 20070828
  2. DEXAMETHASONE [Concomitant]
     Indication: PROSTATE CANCER
     Route: 048
     Dates: start: 20060530, end: 20061120
  3. DEXAMETHASONE [Concomitant]
     Route: 048
     Dates: start: 20061121
  4. DEXAMETHASONE [Concomitant]
     Route: 048
     Dates: end: 20071022
  5. FLIVAS [Concomitant]
     Indication: BENIGN PROSTATIC HYPERPLASIA
     Route: 048
     Dates: start: 20060530, end: 20071022

REACTIONS (1)
  - PROSTATE CANCER [None]
